FAERS Safety Report 9025459 (Version 1)
Quarter: 2013Q1

REPORT INFORMATION
  Report Type: Spontaneous
  Country: CN (occurrence: CN)
  Receive Date: 20130122
  Receipt Date: 20130122
  Transmission Date: 20140127
  Serious: Yes (Hospitalization, Other)
  Sender: FDA-Public Use
  Company Number: PHHY2012CN124423

PATIENT
  Age: 57 Year
  Sex: Female
  Weight: 60 kg

DRUGS (1)
  1. TEGRETOL [Suspect]
     Indication: HERPES ZOSTER
     Dosage: 0.1 MG, TID
     Route: 048
     Dates: start: 20100907, end: 20100920

REACTIONS (7)
  - Hyperpyrexia [Recovering/Resolving]
  - Tracheitis [Recovering/Resolving]
  - Anaphylactoid reaction [Recovering/Resolving]
  - Rash [Recovering/Resolving]
  - Mouth ulceration [Recovering/Resolving]
  - Lip swelling [Recovering/Resolving]
  - Headache [Recovering/Resolving]
